FAERS Safety Report 5016707-1 (Version None)
Quarter: 2006Q2

REPORT INFORMATION
  Report Type: 
  Country: None (occurrence: None)
  Receive Date: 20060602
  Receipt Date: 20041014
  Transmission Date: 20061013
  Serious: No
  Sender: FDA-Public Use
  Company Number: US-GLAXOSMITHKLINE-A0529930A

PATIENT
  Age: 5 Year

DRUGS (2)
  1. AUGMENTIN '125' [Suspect]
     Indication: DRUG USE FOR UNKNOWN INDICATION
     Dosage: 400MG TWICE PER DAY
     Route: 048
     Dates: start: 20041010, end: 20041014
  2. NO CONCURRENT MEDICATION [Concomitant]

REACTIONS (1)
  - POOR QUALITY DRUG ADMINISTERED [None]
